FAERS Safety Report 9695238 (Version 1)
Quarter: 2013Q4

REPORT INFORMATION
  Report Type: Report from Study
  Country: US (occurrence: US)
  Receive Date: 20131119
  Receipt Date: 20131119
  Transmission Date: 20140711
  Serious: Yes (Hospitalization, Other)
  Sender: FDA-Public Use
  Company Number: US-SA-2013SA116894

PATIENT
  Age: 32 Year
  Sex: Female

DRUGS (3)
  1. AUBAGIO [Suspect]
     Indication: MULTIPLE SCLEROSIS
     Route: 048
     Dates: start: 201307
  2. AUBAGIO [Suspect]
     Indication: MULTIPLE SCLEROSIS
     Route: 048
     Dates: start: 201309
  3. AUBAGIO [Suspect]
     Indication: MULTIPLE SCLEROSIS
     Route: 048
     Dates: end: 20131019

REACTIONS (10)
  - Headache [Unknown]
  - Abnormal sensation in eye [Unknown]
  - Dizziness [Unknown]
  - Cognitive disorder [Unknown]
  - Alopecia [Unknown]
  - Infection [Unknown]
  - Visual field defect [Unknown]
  - Diplopia [Unknown]
  - Palpitations [Unknown]
  - Vision blurred [Unknown]
